FAERS Safety Report 9349730 (Version 2)
Quarter: 2013Q2

REPORT INFORMATION
  Report Type: Spontaneous
  Country: BR (occurrence: BR)
  Receive Date: 20130614
  Receipt Date: 20130624
  Transmission Date: 20140414
  Serious: Yes (Hospitalization, Other)
  Sender: FDA-Public Use
  Company Number: BR-PFIZER INC-2013176315

PATIENT
  Age: 85 Year
  Sex: Female
  Weight: 83 kg

DRUGS (4)
  1. LIPITOR [Suspect]
     Dosage: 40 MG, UNK
     Dates: end: 201306
  2. ATACAND [Concomitant]
  3. ATENSINA [Concomitant]
  4. GLIFAGE [Concomitant]
     Dosage: 500, UNK

REACTIONS (2)
  - Cerebrovascular accident [Unknown]
  - Cerebral thrombosis [Not Recovered/Not Resolved]
